FAERS Safety Report 5220741-6 (Version None)
Quarter: 2007Q1

REPORT INFORMATION
  Report Type: 
  Country: None (occurrence: None)
  Receive Date: 20070126
  Receipt Date: 20070117
  Transmission Date: 20070707
  Serious: Yes (Death)
  Sender: FDA-Public Use
  Company Number: US-PURDUE-USA_2007_0026245

PATIENT
  Age: 49 Year
  Sex: Male

DRUGS (2)
  1. METHADONE HCL [Suspect]
     Indication: DRUG USE FOR UNKNOWN INDICATION
     Dosage: UNK, UNK
     Route: 065
  2. OXYCONTIN [Suspect]
     Indication: POST LAMINECTOMY SYNDROME
     Dosage: 160 MG, Q12H
     Route: 065

REACTIONS (1)
  - DEATH [None]
